FAERS Safety Report 11537324 (Version 1)
Quarter: 2015Q3

REPORT INFORMATION
  Report Type: Spontaneous
  Country: US (occurrence: US)
  Receive Date: 20150922
  Receipt Date: 20150922
  Transmission Date: 20151125
  Serious: No
  Sender: FDA-Public Use
  Company Number: US-APOTEX-2014AP006433

PATIENT
  Age: 26 Year
  Sex: Female

DRUGS (6)
  1. PAXIL [Suspect]
     Active Substance: PAROXETINE HYDROCHLORIDE
     Indication: ANXIETY
     Dosage: 20 MG, DAILY
     Route: 065
     Dates: start: 20010730, end: 20030401
  2. PAXIL [Suspect]
     Active Substance: PAROXETINE HYDROCHLORIDE
     Dosage: UNK
     Route: 065
  3. PAROXETINE HYDROCHLORIDE. [Suspect]
     Active Substance: PAROXETINE HYDROCHLORIDE
     Dosage: UNK
     Dates: start: 20040220, end: 20100608
  4. PAXIL [Suspect]
     Active Substance: PAROXETINE HYDROCHLORIDE
     Dosage: UNK UNK, UNKNOWN
     Route: 065
     Dates: start: 20010803, end: 20030401
  5. PAROXETINE HYDROCHLORIDE. [Suspect]
     Active Substance: PAROXETINE HYDROCHLORIDE
     Indication: ANXIETY
     Dosage: 20 MG, DAILY
     Route: 065
     Dates: start: 20020613, end: 20040520
  6. PAXIL [Suspect]
     Active Substance: PAROXETINE HYDROCHLORIDE
     Dosage: UNK UNK, UNKNOWN
     Route: 065
     Dates: start: 20020129, end: 20060207

REACTIONS (3)
  - Umbilical hernia [Unknown]
  - Exposure during pregnancy [Unknown]
  - Vomiting [Unknown]
